FAERS Safety Report 18469296 (Version 1)
Quarter: 2020Q4

REPORT INFORMATION
  Report Type: Spontaneous
  Country: FR (occurrence: FR)
  Receive Date: 20201105
  Receipt Date: 20201105
  Transmission Date: 20210114
  Serious: Yes (Hospitalization)
  Sender: FDA-Public Use
  Company Number: FR-MYLANLABS-2020M1092661

PATIENT
  Age: 95 Year
  Sex: Female

DRUGS (2)
  1. CLINDAMYCIN. [Suspect]
     Active Substance: CLINDAMYCIN
     Indication: ARTHRITIS BACTERIAL
     Dosage: 1800 MILLIGRAM, QD
     Route: 048
     Dates: start: 20200923, end: 20201001
  2. OFLOCET                            /00731801/ [Suspect]
     Active Substance: OFLOXACIN
     Indication: ARTHRITIS BACTERIAL
     Dosage: 200 MILLIGRAM, QD
     Route: 048
     Dates: start: 20200922, end: 20201001

REACTIONS (3)
  - Rash [Recovering/Resolving]
  - Pyrexia [Recovered/Resolved]
  - Eosinophil count increased [Recovered/Resolved]

NARRATIVE: CASE EVENT DATE: 20201001
